FAERS Safety Report 16110519 (Version 1)
Quarter: 2019Q1

REPORT INFORMATION
  Report Type: Spontaneous
  Country: US (occurrence: US)
  Receive Date: 20190325
  Receipt Date: 20190325
  Transmission Date: 20190418
  Serious: No
  Sender: FDA-Public Use
  Company Number: US-AUROBINDO-AUR-APU-2018-032158

PATIENT
  Sex: Female

DRUGS (3)
  1. GABAPENTIN CAPSULES 300 MG [Suspect]
     Active Substance: GABAPENTIN
     Dosage: 6 DOSAGE FORM FOR 2 DAYS
     Route: 065
  2. GABAPENTIN CAPSULES 300 MG [Suspect]
     Active Substance: GABAPENTIN
     Dosage: 9 DOSAGE FORM FOR SIX DAYS
     Route: 065
  3. GABAPENTIN CAPSULES 300 MG [Suspect]
     Active Substance: GABAPENTIN
     Indication: PRODUCT USED FOR UNKNOWN INDICATION
     Dosage: 3 DOSAGE FORM (900 MG) FOR 2 DAYS
     Route: 065

REACTIONS (1)
  - Diarrhoea [Unknown]
